FAERS Safety Report 4393654-X (Version None)
Quarter: 2004Q3

REPORT INFORMATION
  Report Type: 
  Country: None (occurrence: None)
  Receive Date: 20040709
  Receipt Date: 20040705
  Transmission Date: 20050211
  Serious: Yes (Other)
  Sender: FDA-Public Use
  Company Number: IT-MERCK-0407ITA00003

PATIENT
  Age: 28 Year
  Sex: Female

DRUGS (1)
  1. MAXALT [Suspect]
     Indication: MIGRAINE
     Route: 048
     Dates: start: 20040529, end: 20040529

REACTIONS (3)
  - DYSPNOEA [None]
  - HYPERTENSIVE CRISIS [None]
  - TACHYCARDIA [None]
